FAERS Safety Report 12391501 (Version 3)
Quarter: 2016Q3

REPORT INFORMATION
  Report Type: Spontaneous
  Country: IT (occurrence: IT)
  Receive Date: 20160521
  Receipt Date: 20160707
  Transmission Date: 20161109
  Serious: Yes (Other)
  Sender: FDA-Public Use
  Company Number: IT-ACCORD-040448

PATIENT
  Age: 71 Year
  Sex: Male

DRUGS (1)
  1. GEMCITABINE/GEMCITABINE HYDROCHLORIDE [Suspect]
     Active Substance: GEMCITABINE\GEMCITABINE HYDROCHLORIDE
     Indication: CHOLANGIOCARCINOMA
     Dosage: RECEIVED FOURTH CYCLE AS PALLIATIVE?THERAPY

REACTIONS (3)
  - Livedo reticularis [Recovered/Resolved]
  - Haemolytic uraemic syndrome [Recovering/Resolving]
  - Off label use [Unknown]

NARRATIVE: CASE EVENT DATE: 20141016
